FAERS Safety Report 9030700 (Version 2)
Quarter: 2013Q1

REPORT INFORMATION
  Report Type: Spontaneous
  Country: US (occurrence: US)
  Receive Date: 20130123
  Receipt Date: 20130128
  Transmission Date: 20140127
  Serious: Yes (Hospitalization)
  Sender: FDA-Public Use
  Company Number: US-PFIZER INC-2013028240

PATIENT
  Age: 34 Year
  Sex: Female
  Weight: 79.37 kg

DRUGS (5)
  1. GEODON [Suspect]
     Indication: MENTAL DISORDER
     Dosage: 80 MG, 2X/DAY
  2. ZIPRASIDONE HYDROCHLORIDE [Suspect]
     Indication: MENTAL DISORDER
     Dosage: 20 MG, FIVE TIMES A DAY
     Dates: start: 201203
  3. ZIPRASIDONE HYDROCHLORIDE [Suspect]
     Dosage: 80 MG, DAILY
     Dates: start: 2012
  4. ZIPRASIDONE HYDROCHLORIDE [Suspect]
     Dosage: 80 MG, 2X/DAY
     Dates: start: 201301
  5. REMICADE [Concomitant]
     Indication: COLITIS
     Dosage: UNK, EVERY 8 WEEKS

REACTIONS (5)
  - Drug ineffective [Unknown]
  - Agitation [Not Recovered/Not Resolved]
  - Stress [Not Recovered/Not Resolved]
  - Sleep phase rhythm disturbance [Not Recovered/Not Resolved]
  - Somnolence [Not Recovered/Not Resolved]
